FAERS Safety Report 6098654-X (Version None)
Quarter: 2009Q1

REPORT INFORMATION
  Report Type: 
  Country: None (occurrence: None)
  Receive Date: 20090302
  Receipt Date: 20090220
  Transmission Date: 20090719
  Serious: Yes (Hospitalization, Other)
  Sender: FDA-Public Use
  Company Number: US-CELGENEUS-163-20785-04100252

PATIENT
  Sex: Male
  Weight: 90.8 kg

DRUGS (6)
  1. THALOMID [Suspect]
     Indication: MALIGNANT MELANOMA
     Route: 048
     Dates: start: 20040817, end: 20041006
  2. LEUKINE [Suspect]
     Indication: MALIGNANT MELANOMA
     Route: 058
     Dates: start: 20040817, end: 20040927
  3. HYDROCHLOROTHIAZIDE [Concomitant]
     Indication: DRUG USE FOR UNKNOWN INDICATION
     Route: 065
     Dates: start: 20030807, end: 20041006
  4. PEPCID [Concomitant]
     Indication: DRUG USE FOR UNKNOWN INDICATION
     Route: 065
     Dates: start: 20040801, end: 20041001
  5. COUMADIN [Concomitant]
     Indication: DRUG USE FOR UNKNOWN INDICATION
     Route: 065
     Dates: start: 20041006
  6. TUMS [Concomitant]
     Indication: DRUG USE FOR UNKNOWN INDICATION
     Route: 065
     Dates: start: 20040801, end: 20041001

REACTIONS (6)
  - CONFUSIONAL STATE [None]
  - DEEP VEIN THROMBOSIS [None]
  - DRUG INTERACTION [None]
  - FATIGUE [None]
  - PULMONARY EMBOLISM [None]
  - VOMITING [None]
